FAERS Safety Report 8962097 (Version 2)
Quarter: 2013Q1

REPORT INFORMATION
  Report Type: Spontaneous
  Country: US (occurrence: US)
  Receive Date: 20121213
  Receipt Date: 20130218
  Transmission Date: 20140127
  Serious: Yes (Other)
  Sender: FDA-Public Use
  Company Number: US-AMGEN-USASP2012078520

PATIENT
  Age: 14 Year
  Sex: Female
  Weight: 52 kg

DRUGS (2)
  1. ENBREL [Suspect]
     Indication: JUVENILE IDIOPATHIC ARTHRITIS
     Dosage: 50 MG,WEEKLY
     Route: 058
     Dates: start: 20120810
  2. METHOTREXATE [Concomitant]
     Dosage: UNK
     Dates: start: 20111201

REACTIONS (4)
  - Depression [Not Recovered/Not Resolved]
  - Decreased appetite [Not Recovered/Not Resolved]
  - Fatigue [Not Recovered/Not Resolved]
  - Anxiety [Unknown]
